FAERS Safety Report 4316324-2 (Version None)
Quarter: 2004Q1

REPORT INFORMATION
  Report Type: 
  Country: None (occurrence: None)
  Receive Date: 20040312
  Receipt Date: 20040302
  Transmission Date: 20041129
  Serious: Yes (Hospitalization, Other)
  Sender: FDA-Public Use
  Company Number: GR-BRISTOL-MYERS SQUIBB COMPANY-12526950

PATIENT
  Age: 67 Year
  Sex: Female

DRUGS (5)
  1. METFORMIN HCL [Suspect]
     Indication: DIABETES MELLITUS
     Route: 048
  2. ISOSORBIDE MONONITRATE [Concomitant]
     Indication: CORONARY ARTERY DISEASE
  3. SALICYLIC ACID [Concomitant]
     Indication: CORONARY ARTERY DISEASE
  4. DILTIAZEM HCL [Concomitant]
     Indication: CORONARY ARTERY DISEASE
  5. ACARBOSE [Concomitant]
     Indication: DIABETES MELLITUS

REACTIONS (1)
  - HEPATITIS CHOLESTATIC [None]
